FAERS Safety Report 6796325-5 (Version None)
Quarter: 2010Q2

REPORT INFORMATION
  Report Type: 
  Country: None (occurrence: None)
  Receive Date: 20100622
  Receipt Date: 20100615
  Transmission Date: 20101027
  Serious: Yes (Death, Hospitalization)
  Sender: FDA-Public Use
  Company Number: 2010EU002537

PATIENT
  Age: 62 Year
  Sex: Male

DRUGS (9)
  1. PROGRAF [Suspect]
     Indication: RENAL TRANSPLANT
     Dosage: 0.5 MG, BID, ORAL
     Route: 048
     Dates: start: 20060301
  2. SANDIMMUNE [Suspect]
     Indication: RENAL TRANSPLANT
     Dosage: 200 MG, BID, ORAL
     Route: 048
     Dates: start: 19960101, end: 20060101
  3. AMLOBETA (AMLODIPINE MESILATE) [Concomitant]
  4. CLONIDINE HCL [Concomitant]
  5. METOHEXAL (METOPROLOL TARTRATE) [Concomitant]
  6. BENAZEPRIL HYDROCHLORIDE [Concomitant]
  7. BENZBROMARONE (BENZBROMARONE) [Concomitant]
  8. TRIAMTEREN COMP (HYDROCHLOROTHIAZIDE, TRIAMTERENE) [Concomitant]
  9. FLUVASTATIN SODIUM [Concomitant]

REACTIONS (13)
  - ALANINE AMINOTRANSFERASE INCREASED [None]
  - ASPARTATE AMINOTRANSFERASE INCREASED [None]
  - ASTHENIA [None]
  - BRONCHOALVEOLAR LAVAGE ABNORMAL [None]
  - COUGH [None]
  - ENTEROCOCCAL INFECTION [None]
  - GAMMA-GLUTAMYLTRANSFERASE INCREASED [None]
  - LUNG ADENOCARCINOMA [None]
  - PNEUMONIA [None]
  - PNEUMONIA FUNGAL [None]
  - PYREXIA [None]
  - RESPIRATORY FAILURE [None]
  - WEIGHT DECREASED [None]
